FAERS Safety Report 6460073-1 (Version None)
Quarter: 2009Q4

REPORT INFORMATION
  Report Type: 
  Country: None (occurrence: None)
  Receive Date: 20091129
  Receipt Date: 20091120
  Transmission Date: 20100525
  Serious: Yes (Hospitalization)
  Sender: FDA-Public Use
  Company Number: PHHO2009US14458

PATIENT
  Sex: Female
  Weight: 64.6 kg

DRUGS (14)
  1. AFINITOR [Suspect]
     Indication: METASTATIC RENAL CELL CARCINOMA
     Dosage: 10 MG DAILY
     Route: 048
     Dates: start: 20091112, end: 20091116
  2. AFINITOR [Suspect]
     Dosage: 10 MG DAILY
     Route: 048
     Dates: start: 20091118
  3. SORAFENIB [Suspect]
     Indication: METASTATIC RENAL CELL CARCINOMA
     Dosage: 300 MG, BID
     Route: 048
     Dates: start: 20091112, end: 20091116
  4. SORAFENIB [Suspect]
     Dosage: 300 MG, BID
     Dates: start: 20091118
  5. SYNTHROID [Concomitant]
  6. METOPROLOL [Concomitant]
  7. HYDROCORTISONE [Concomitant]
  8. LASIX [Concomitant]
  9. FLUDROCORTISONE [Concomitant]
  10. PHENERGAN [Concomitant]
  11. TYLENOL (CAPLET) [Concomitant]
  12. SENNA [Concomitant]
  13. DOCUSATE [Concomitant]
  14. POTASSIUM PHOSPHATES [Concomitant]

REACTIONS (4)
  - BLOOD PRESSURE INCREASED [None]
  - HEADACHE [None]
  - NAUSEA [None]
  - VOMITING [None]
